FAERS Safety Report 10784789 (Version 1)
Quarter: 2015Q1

REPORT INFORMATION
  Report Type: Spontaneous
  Country: US (occurrence: US)
  Receive Date: 20150211
  Receipt Date: 20150211
  Transmission Date: 20150721
  Serious: No
  Sender: FDA-Public Use
  Company Number: US-GLAXOSMITHKLINE-A1086742A

PATIENT

DRUGS (2)
  1. LAMICTAL [Suspect]
     Active Substance: LAMOTRIGINE
     Indication: BIPOLAR DISORDER
     Dosage: 100 MG UNKNOWN DOSING 29 MAY 2007 - 21 DECEMBER 2007; 200 MG UNKNOWN DOSING 22 DECEMBER 2008
     Route: 065
     Dates: start: 20070529
  2. LITHIUM [Suspect]
     Active Substance: LITHIUM CARBONATE
     Indication: PRODUCT USED FOR UNKNOWN INDICATION
     Dosage: UNKNOWN DOSING
     Route: 065

REACTIONS (1)
  - Tremor [Unknown]
